FAERS Safety Report 5362842-8 (Version None)
Quarter: 2007Q2

REPORT INFORMATION
  Report Type: 
  Country: None (occurrence: None)
  Receive Date: 20070612
  Receipt Date: 20070529
  Transmission Date: 20071010
  Serious: Yes (Death)
  Sender: FDA-Public Use
  Company Number: 156908ISR

PATIENT
  Age: 66 Year
  Sex: Female

DRUGS (2)
  1. CARBOPLATIN [Suspect]
     Indication: LUNG NEOPLASM MALIGNANT
     Dosage: ?? INTRAVENOUS (NOT OTHERWISE SPECIFIED)
     Route: 042
  2. VINORELBINE [Concomitant]

REACTIONS (3)
  - ASPHYXIA [None]
  - BRONCHOSPASM [None]
  - PULSE ABSENT [None]
